FAERS Safety Report 7389638 (Version 2)
Quarter: 2019Q1

REPORT INFORMATION
  Report Type: Report from Study
  Country: JP (occurrence: JP)
  Receive Date: 20100517
  Receipt Date: 20190129
  Transmission Date: 20190418
  Serious: Yes (Death, Other)
  Sender: FDA-Public Use
  Company Number: PHHO2005JP12291

PATIENT
  Age: 81 Year
  Sex: Male
  Weight: 47 kg

DRUGS (3)
  1. GLIVEC [Suspect]
     Active Substance: IMATINIB MESYLATE
     Dosage: 100 MG, BID
     Route: 048
     Dates: start: 20090525, end: 20090924
  2. GLIVEC [Suspect]
     Active Substance: IMATINIB MESYLATE
     Indication: GASTROINTESTINAL STROMAL TUMOUR
     Dosage: 400 MG, QD
     Route: 048
     Dates: start: 20041122, end: 20050214
  3. GLIVEC [Suspect]
     Active Substance: IMATINIB MESYLATE
     Dosage: 100 MG, BID
     Route: 048
     Dates: start: 20070604, end: 20081201

REACTIONS (8)
  - Hepatorenal failure [Fatal]
  - Oedema peripheral [Recovering/Resolving]
  - Decreased appetite [Recovered/Resolved]
  - Marasmus [Fatal]
  - Decreased appetite [Recovered/Resolved]
  - Oedema [Recovering/Resolving]
  - Interstitial lung disease [Recovered/Resolved]
  - Nasopharyngitis [Recovered/Resolved]

NARRATIVE: CASE EVENT DATE: 20050117
